FAERS Safety Report 9244445 (Version 1)
Quarter: 2013Q1

REPORT INFORMATION
  Report Type: Spontaneous
  Country: US (occurrence: None)
  Receive Date: 20121123
  Receipt Date: 20121123
  Transmission Date: 20140127
  Serious: No
  Sender: FDA-Public Use
  Company Number: 357878

PATIENT
  Age: 59 Year
  Sex: Male

DRUGS (1)
  1. VICTOZA [Suspect]
     Indication: TYPE 2 DIABETES MELLITUS
     Dosage: 0.6 MG, UNK X 2 WEEKS
     Dates: start: 20120720

REACTIONS (6)
  - Gastric disorder [None]
  - Diarrhoea [None]
  - Flatulence [None]
  - Eructation [None]
  - Abdominal distension [None]
  - Drug ineffective [None]
